FAERS Safety Report 9142292 (Version 1)
Quarter: 2013Q1

REPORT INFORMATION
  Report Type: Spontaneous
  Country: DE (occurrence: DE)
  Receive Date: 20130305
  Receipt Date: 20130305
  Transmission Date: 20140127
  Serious: Yes (Other)
  Sender: FDA-Public Use
  Company Number: DE-MYLANLABS-2013S1004084

PATIENT
  Age: 17 Year
  Sex: Female

DRUGS (3)
  1. MYCOPHENOLATE MOFETIL [Suspect]
     Indication: SUSAC^S SYNDROME
     Route: 048
  2. PREDNISOLONE [Concomitant]
     Indication: SUSAC^S SYNDROME
  3. BETAMETHASONE [Concomitant]
     Indication: MATERNAL THERAPY TO ENHANCE FOETAL LUNG MATURITY
     Route: 030

REACTIONS (3)
  - Premature labour [Unknown]
  - Exposure during pregnancy [Unknown]
  - C-reactive protein increased [Unknown]
